FAERS Safety Report 11837572 (Version 1)
Quarter: 2015Q4

REPORT INFORMATION
  Report Type: Spontaneous
  Country: CA (occurrence: CA)
  Receive Date: 20151215
  Receipt Date: 20151215
  Transmission Date: 20160305
  Serious: Yes (Death)
  Sender: FDA-Public Use
  Company Number: CA-SA-2015SA210896

PATIENT
  Sex: Male

DRUGS (3)
  1. CITALOPRAM [Concomitant]
     Active Substance: CITALOPRAM HYDROBROMIDE
  2. LASIX [Suspect]
     Active Substance: FUROSEMIDE
     Indication: FLUID RETENTION
     Route: 065
  3. LASIX [Suspect]
     Active Substance: FUROSEMIDE
     Indication: PROPHYLAXIS
     Route: 065

REACTIONS (1)
  - Death [Fatal]
